FAERS Safety Report 8153276-1 (Version None)
Quarter: 2012Q1

REPORT INFORMATION
  Report Type: 
  Country: None (occurrence: None)
  Receive Date: 20120103
  Receipt Date: 20111031
  Transmission Date: 20120608
  Serious: No
  Sender: FDA-Public Use
  Company Number: AE-2011-002881

PATIENT
  Age: 64 Year
  Sex: Female
  Weight: 82.1011 kg

DRUGS (9)
  1. RIBAVIRIN [Concomitant]
  2. PROTONIX [Concomitant]
  3. INCIVEK [Suspect]
     Dosage: 2250 MG (750 MG,1 IN 8 HR),ORAL
     Route: 048
     Dates: start: 20111017
  4. BYSTOLIC [Concomitant]
  5. VITAMIN D [Concomitant]
  6. B12 (CYANOCOBALAMIN) [Concomitant]
  7. LOTENSION (BENAZAPRIL HYDROCHLORIDE) [Concomitant]
  8. FOLIC ACID [Concomitant]
  9. PEGASYS [Concomitant]

REACTIONS (4)
  - PYREXIA [None]
  - OROPHARYNGEAL BLISTERING [None]
  - DIARRHOEA [None]
  - SWELLING FACE [None]
